FAERS Safety Report 7137639-9 (Version None)
Quarter: 2010Q4

REPORT INFORMATION
  Report Type: 
  Country: None (occurrence: None)
  Receive Date: 20101103
  Receipt Date: 20100617
  Transmission Date: 20110411
  Serious: Yes (Other)
  Sender: FDA-Public Use
  Company Number: 2010S1000592

PATIENT
  Age: 53 Year
  Sex: Female

DRUGS (15)
  1. CUBICIN [Suspect]
     Indication: ABSCESS
     Dosage: 1000 MG;Q24H;IV
     Route: 042
     Dates: start: 20100329, end: 20100418
  2. CUBICIN [Suspect]
     Indication: ARTHRITIS BACTERIAL
     Dosage: 1000 MG;Q24H;IV
     Route: 042
     Dates: start: 20100329, end: 20100418
  3. CUBICIN [Suspect]
     Indication: EXTRADURAL ABSCESS
     Dosage: 1000 MG;Q24H;IV
     Route: 042
     Dates: start: 20100329, end: 20100418
  4. CUBICIN [Suspect]
     Indication: STAPHYLOCOCCAL BACTERAEMIA
     Dosage: 1000 MG;Q24H;IV
     Route: 042
     Dates: start: 20100329, end: 20100418
  5. LEVOTHYROXINE SODIUM [Concomitant]
  6. LYRICA [Concomitant]
  7. FENTANYL-100 [Concomitant]
  8. PANTOPRAZOLE [Concomitant]
  9. AMITRIPTYLINE [Concomitant]
  10. LOSARTAN [Concomitant]
  11. TRICOR [Concomitant]
  12. HYDROMORPHONE HYDROCHLORIDE [Concomitant]
  13. BACLOFEN [Concomitant]
  14. METFORMIN [Concomitant]
  15. HUMALOG MIX /01293501/ [Concomitant]

REACTIONS (3)
  - BLOOD CREATINE PHOSPHOKINASE INCREASED [None]
  - MUSCULAR WEAKNESS [None]
  - MYALGIA [None]
